FAERS Safety Report 24606874 (Version 1)
Quarter: 2024Q4

REPORT INFORMATION
  Report Type: Spontaneous
  Country: US (occurrence: US)
  Receive Date: 20241112
  Receipt Date: 20241112
  Transmission Date: 20250115
  Serious: No
  Sender: LUPIN
  Company Number: US-LUPIN PHARMACEUTICALS INC.-2024-10854

PATIENT

DRUGS (2)
  1. ALBUTEROL SULFATE [Suspect]
     Active Substance: ALBUTEROL SULFATE
     Indication: Pneumonia
     Dosage: UNK, Q4H, 2 PUFFS EVERY 4 HOURS.
     Dates: start: 202410
  2. ALBUTEROL SULFATE [Suspect]
     Active Substance: ALBUTEROL SULFATE
     Dosage: UNK, Q4H, 2 PUFFS EVERY 4 HOURS.
     Dates: start: 202410

REACTIONS (6)
  - Wrong technique in device usage process [Unknown]
  - Product use in unapproved indication [Unknown]
  - Device information output issue [Unknown]
  - Product expiration date issue [Unknown]
  - Product lot number issue [Unknown]
  - No adverse event [Unknown]
